FAERS Safety Report 7692630-9 (Version None)
Quarter: 2011Q3

REPORT INFORMATION
  Report Type: 
  Country: None (occurrence: None)
  Receive Date: 20110819
  Receipt Date: 20110812
  Transmission Date: 20111222
  Serious: Yes (Other)
  Sender: FDA-Public Use
  Company Number: US-BRISTOL-MYERS SQUIBB COMPANY-15968175

PATIENT
  Age: 83 Year
  Sex: Female

DRUGS (3)
  1. SYNTHROID [Concomitant]
  2. PRAVACHOL [Suspect]
     Route: 048
     Dates: start: 20110301, end: 20110101
  3. ACETYLSALICYLIC ACID SRT [Concomitant]

REACTIONS (5)
  - BLOOD GLUCOSE DECREASED [None]
  - HEADACHE [None]
  - NAUSEA [None]
  - HIGH DENSITY LIPOPROTEIN DECREASED [None]
  - DIZZINESS [None]
